FAERS Safety Report 23493599 (Version 3)
Quarter: 2024Q2

REPORT INFORMATION
  Report Type: Report from Study
  Country: US (occurrence: US)
  Receive Date: 20240207
  Receipt Date: 20240404
  Transmission Date: 20240715
  Serious: Yes (Hospitalization, Other)
  Sender: FDA-Public Use
  Company Number: US-SUN PHARMACEUTICAL INDUSTRIES LTD-2024R1-430276

PATIENT
  Age: 30 Year
  Sex: Male

DRUGS (1)
  1. CLOZAPINE [Suspect]
     Active Substance: CLOZAPINE
     Indication: Schizophrenia
     Dosage: UNK (400 MG IN THE EVENING AND 100 MG IN THE MORNING)
     Route: 065
     Dates: start: 20231104

REACTIONS (2)
  - Psychiatric symptom [Unknown]
  - Neutropenia [Unknown]

NARRATIVE: CASE EVENT DATE: 20240122
